FAERS Safety Report 6376390-X (Version None)
Quarter: 2009Q3

REPORT INFORMATION
  Report Type: 
  Country: None (occurrence: None)
  Receive Date: 20090918
  Receipt Date: 20090909
  Transmission Date: 20100115
  Serious: Yes (Other)
  Sender: FDA-Public Use
  Company Number: 09DE001203

PATIENT
  Sex: Female

DRUGS (4)
  1. PAROXETINE HCL [Suspect]
     Indication: DEPRESSION
     Dosage: 10 MG
  2. VALPROIC ACID [Suspect]
     Indication: DEPRESSIVE SYMPTOM
     Dosage: 250 MG
  3. MAGNESIUM (MAGNESIUM) [Concomitant]
  4. LEVOTHYROXINE SODIUM [Concomitant]

REACTIONS (20)
  - AMNESIA [None]
  - ANDROGEN DEFICIENCY [None]
  - ANORGASMIA [None]
  - BIPOLAR DISORDER [None]
  - DECREASED ACTIVITY [None]
  - DEPRESSION [None]
  - DRUG INEFFECTIVE [None]
  - DRUG WITHDRAWAL SYNDROME [None]
  - DYSTONIA [None]
  - DYSURIA [None]
  - EMOTIONAL DISTRESS [None]
  - FEELING ABNORMAL [None]
  - FEMALE SEXUAL AROUSAL DISORDER [None]
  - INSOMNIA [None]
  - LIBIDO INCREASED [None]
  - MICTURITION DISORDER [None]
  - NOCTURIA [None]
  - POLLAKIURIA [None]
  - RESIDUAL URINE [None]
  - SUICIDAL IDEATION [None]
